FAERS Safety Report 5751167-4 (Version None)
Quarter: 2008Q2

REPORT INFORMATION
  Report Type: 
  Country: None (occurrence: None)
  Receive Date: 20080528
  Receipt Date: 20080519
  Transmission Date: 20081010
  Serious: Yes (Other)
  Sender: FDA-Public Use
  Company Number: US-PFIZER INC-2008029222

PATIENT
  Sex: Female
  Weight: 60.8 kg

DRUGS (7)
  1. GEODON [Suspect]
     Indication: BIPOLAR DISORDER
     Route: 048
  2. GEODON [Suspect]
     Indication: ANXIETY
  3. GEODON [Suspect]
     Indication: DEPRESSION
  4. ORAL CONTRACEPTIVE NOS [Concomitant]
     Indication: ORAL CONTRACEPTION
  5. MAXALT [Concomitant]
     Indication: MIGRAINE
  6. ZOLOFT [Concomitant]
  7. AMITRIPTYLINE HCL [Concomitant]

REACTIONS (4)
  - BLOOD POTASSIUM DECREASED [None]
  - INCORRECT DOSE ADMINISTERED [None]
  - SOMNOLENCE [None]
  - SUICIDE ATTEMPT [None]
